FAERS Safety Report 18320967 (Version 1)
Quarter: 2020Q3

REPORT INFORMATION
  Report Type: Spontaneous
  Country: DE (occurrence: DE)
  Receive Date: 20200929
  Receipt Date: 20200929
  Transmission Date: 20201103
  Serious: Yes (Hospitalization)
  Sender: FDA-Public Use
  Company Number: DE-TEVA-2020-DE-1831522

PATIENT
  Age: 48 Year
  Sex: Male
  Weight: 138 kg

DRUGS (3)
  1. ARIPIPRAZOL [Suspect]
     Active Substance: ARIPIPRAZOLE
     Dosage: 2 DOSAGE FORMS DAILY; 10 MG, 2?0?0?0
     Route: 048
  2. CLOZAPIN [Suspect]
     Active Substance: CLOZAPINE
     Dosage: 2 DOSAGE FORMS DAILY; 100 MG, 0?0?2?0
     Route: 048
  3. PANTOPRAZOL [Concomitant]
     Active Substance: PANTOPRAZOLE SODIUM
     Dosage: 20 MILLIGRAM DAILY; 20 MG, 1?0?0?0
     Route: 048

REACTIONS (4)
  - Skin irritation [Unknown]
  - Inflammation [Unknown]
  - Localised infection [Unknown]
  - Abscess [Unknown]
